FAERS Safety Report 7208463-3 (Version None)
Quarter: 2010Q4

REPORT INFORMATION
  Report Type: 
  Country: None (occurrence: None)
  Receive Date: 20101208
  Receipt Date: 20101208
  Transmission Date: 20110411
  Serious: Yes (Hospitalization)
  Sender: FDA-Public Use
  Company Number: None

PATIENT
  Sex: Female
  Weight: 73 kg

DRUGS (1)
  1. LISINOPRIL [Suspect]
     Dosage: 20MG DAILY PO
     Route: 048

REACTIONS (1)
  - ANGIOEDEMA [None]
